FAERS Safety Report 21909556 (Version 4)
Quarter: 2023Q1

REPORT INFORMATION
  Report Type: Spontaneous
  Country: CZ (occurrence: CZ)
  Receive Date: 20230125
  Receipt Date: 20230223
  Transmission Date: 20230418
  Serious: Yes (Life-Threatening, Other)
  Sender: FDA-Public Use
  Company Number: CZ-002147023-NVSC2022CZ288080

PATIENT
  Age: 79 Year
  Sex: Female

DRUGS (6)
  1. AZACITIDINE [Suspect]
     Active Substance: AZACITIDINE
     Indication: Myelodysplastic syndrome
     Dosage: UNK, CYCLIC WITH VENETOCLAX
     Route: 065
     Dates: start: 2021
  2. AZACITIDINE [Suspect]
     Active Substance: AZACITIDINE
     Indication: Acute myeloid leukaemia
     Dosage: UNK, CYCLIC
     Route: 065
  3. AZACITIDINE [Suspect]
     Active Substance: AZACITIDINE
     Dosage: UNK, CYCLIC WITH VENETOCLAX
     Route: 065
     Dates: start: 202102
  4. VENETOCLAX [Suspect]
     Active Substance: VENETOCLAX
     Indication: Myelodysplastic syndrome
     Dosage: 300 MG, QD (THERAPY END DATE: 2021)
     Route: 048
     Dates: start: 202108
  5. VENETOCLAX [Suspect]
     Active Substance: VENETOCLAX
     Indication: Acute myeloid leukaemia
     Dosage: 200 MG, QD (START DATE: 2021, REDUCED THE DOSE)
     Route: 048
  6. GRANULOCYTE COLONY-STIMULATING FACTOR NOS [Concomitant]
     Active Substance: GRANULOCYTE COLONY-STIMULATING FACTOR NOS
     Indication: Myelodysplastic syndrome
     Dosage: UNK
     Route: 065
     Dates: start: 2021

REACTIONS (8)
  - Neutropenia [Unknown]
  - Malignant neoplasm progression [Unknown]
  - Myelodysplastic syndrome [Unknown]
  - Acute myeloid leukaemia recurrent [Unknown]
  - Therapy partial responder [Unknown]
  - Condition aggravated [Unknown]
  - COVID-19 [Unknown]
  - Product use issue [Unknown]

NARRATIVE: CASE EVENT DATE: 20210801
